FAERS Safety Report 9732104 (Version 2)
Quarter: 2014Q1

REPORT INFORMATION
  Report Type: Report from Study
  Country: BR (occurrence: BR)
  Receive Date: 20131205
  Receipt Date: 20140107
  Transmission Date: 20141002
  Serious: Yes (Other)
  Sender: FDA-Public Use
  Company Number: PHHY2013BR141376

PATIENT
  Sex: Female
  Weight: 87 kg

DRUGS (3)
  1. FORASEQ [Suspect]
     Indication: ASTHMA
     Dosage: 1 CAPSULE OF EACH TREATMENT DAILY
     Route: 055
     Dates: start: 2003, end: 2013
  2. ALENIA                             /01538101/ [Concomitant]
     Indication: ASTHMA
     Dosage: 2 CAPSULES DAILY
     Route: 055
  3. CIMECORT [Concomitant]
     Dosage: 2 CAPSULES DAILY
     Route: 055

REACTIONS (2)
  - Cerebrovascular accident [Recovered/Resolved]
  - Cholelithiasis [Unknown]
